FAERS Safety Report 21940729 (Version 1)
Quarter: 2023Q1

REPORT INFORMATION
  Report Type: Report from Study
  Country: US (occurrence: US)
  Receive Date: 20230201
  Receipt Date: 20230201
  Transmission Date: 20230417
  Serious: No
  Sender: FDA-Public Use
  Company Number: US-EXELIXIS-CABO-22052219

PATIENT
  Age: 61 Year
  Sex: Male

DRUGS (1)
  1. CABOMETYX [Suspect]
     Active Substance: CABOZANTINIB S-MALATE
     Indication: Thyroid cancer
     Dosage: 60 MG, QD
     Route: 048
     Dates: start: 20220329, end: 20221015

REACTIONS (6)
  - Dysphagia [Unknown]
  - Nausea [Unknown]
  - Stomatitis [Unknown]
  - Dry mouth [Unknown]
  - Drug ineffective [Unknown]
  - Tumour pain [Unknown]

NARRATIVE: CASE EVENT DATE: 20220902
